FAERS Safety Report 6412320-X (Version None)
Quarter: 2009Q4

REPORT INFORMATION
  Report Type: 
  Country: None (occurrence: None)
  Receive Date: 20091023
  Receipt Date: 20091019
  Transmission Date: 20100525
  Serious: Yes (Hospitalization)
  Sender: FDA-Public Use
  Company Number: DE-BIOGENIDEC-2009BI033573

PATIENT
  Age: 25 Year
  Sex: Female
  Weight: 93 kg

DRUGS (1)
  1. AVONEX [Suspect]
     Indication: RELAPSING-REMITTING MULTIPLE SCLEROSIS
     Route: 030
     Dates: start: 20081111

REACTIONS (6)
  - INTESTINAL OPERATION [None]
  - MULTIPLE SCLEROSIS RELAPSE [None]
  - RENAL COLIC [None]
  - RENAL PAIN [None]
  - RENAL STONE REMOVAL [None]
  - TONSILLECTOMY [None]
